FAERS Safety Report 12255006 (Version 1)
Quarter: 2016Q2

REPORT INFORMATION
  Report Type: Report from Study
  Country: US (occurrence: US)
  Receive Date: 20160411
  Receipt Date: 20160411
  Transmission Date: 20160815
  Serious: No
  Sender: FDA-Public Use
  Company Number: ADR-2015-00781

PATIENT
  Age: 73 Year
  Sex: Male

DRUGS (12)
  1. COMPOUNDED BACLOFEN [Suspect]
     Active Substance: BACLOFEN
     Dosage: 350.2MCG/DAY
     Route: 037
     Dates: start: 20131011, end: 20140109
  2. HYDROMORPHONE [Suspect]
     Active Substance: HYDROMORPHONE
     Dosage: 2MG/DAY
     Route: 037
     Dates: start: 20140410, end: 20140807
  3. CLONIDINE. [Suspect]
     Active Substance: CLONIDINE
     Dosage: 160MCG/DAY
     Route: 037
     Dates: start: 20140410, end: 20140807
  4. HYDROMORPHONE [Suspect]
     Active Substance: HYDROMORPHONE
     Dosage: 2.202MG/DAY
     Route: 037
     Dates: start: 20140807
  5. CLONIDINE. [Suspect]
     Active Substance: CLONIDINE
     Dosage: 176.19MCG/DAY
     Route: 037
     Dates: start: 20140807
  6. CLONIDINE. [Suspect]
     Active Substance: CLONIDINE
     Dosage: 148.01MCG/DAY
     Route: 037
     Dates: start: 20140109, end: 20140410
  7. HYDROMORPHONE [Suspect]
     Active Substance: HYDROMORPHONE
     Dosage: 1.751MG/DAY
     Route: 037
     Dates: start: 20131011, end: 20140109
  8. COMPOUNDED BACLOFEN [Suspect]
     Active Substance: BACLOFEN
     Dosage: 440.5MCG/DAY
     Route: 037
     Dates: start: 20140807
  9. COMPOUNDED BACLOFEN [Suspect]
     Active Substance: BACLOFEN
     Dosage: 370MCG/DAY
     Route: 037
     Dates: start: 20140109, end: 20140410
  10. HYDROMORPHONE [Suspect]
     Active Substance: HYDROMORPHONE
     Dosage: 1.85MG/DAY
     Route: 037
     Dates: start: 20140109, end: 20140410
  11. CLONIDINE. [Suspect]
     Active Substance: CLONIDINE
     Dosage: 140.07MCG/DAY
     Route: 037
     Dates: start: 20131011, end: 20140109
  12. COMPOUNDED BACLOFEN [Suspect]
     Active Substance: BACLOFEN
     Dosage: 400MCG/DAY
     Route: 037
     Dates: start: 20140410, end: 20140807

REACTIONS (3)
  - Pain [Recovered/Resolved]
  - Hyperaesthesia [Recovered/Resolved]
  - Malaise [Recovered/Resolved]

NARRATIVE: CASE EVENT DATE: 20140410
